FAERS Safety Report 6944395-3 (Version None)
Quarter: 2010Q3

REPORT INFORMATION
  Report Type: 
  Country: None (occurrence: None)
  Receive Date: 20100827
  Receipt Date: 20100820
  Transmission Date: 20110219
  Serious: Yes (Hospitalization, Disabling)
  Sender: FDA-Public Use
  Company Number: JP-SANOFI-AVENTIS-2010SA050021

PATIENT
  Age: 69 Year
  Sex: Male

DRUGS (15)
  1. PLAVIX [Suspect]
     Indication: ISCHAEMIC CEREBRAL INFARCTION
     Route: 048
     Dates: start: 20070923
  2. ASPIRIN [Concomitant]
     Indication: ANTIPLATELET THERAPY
     Dosage: DOSAGE UNKNOWN
     Route: 048
     Dates: end: 20070925
  3. VALSARTAN [Concomitant]
     Indication: HYPERTENSION
     Route: 048
     Dates: start: 20071002, end: 20071004
  4. VALSARTAN [Concomitant]
     Route: 048
     Dates: start: 20071005, end: 20071019
  5. VALSARTAN [Concomitant]
     Route: 048
     Dates: start: 20071019
  6. IMIDAPRIL HYDROCHLORIDE [Concomitant]
     Indication: HYPERTENSION
     Route: 048
     Dates: start: 20071026
  7. NOVORAPID [Concomitant]
     Indication: DIABETES MELLITUS
     Dosage: DIVIDED DOSE FREQUENCY UNKNOWN
     Route: 058
  8. ULCERLMIN [Concomitant]
     Route: 048
  9. CAMOSTAT MESILATE [Concomitant]
     Route: 048
  10. URSO 250 [Concomitant]
     Route: 048
  11. GASTER D [Concomitant]
     Route: 048
  12. MAGLAX [Concomitant]
     Route: 048
  13. MECOBALAMIN [Concomitant]
     Route: 048
  14. FUROSEMIDE [Concomitant]
     Route: 048
     Dates: start: 20070923
  15. RADICUT [Concomitant]
     Route: 041
     Dates: start: 20070921, end: 20070923

REACTIONS (3)
  - BLOOD AMYLASE INCREASED [None]
  - NEPHROTIC SYNDROME [None]
  - RENAL FAILURE ACUTE [None]
